FAERS Safety Report 8601909 (Version 3)
Quarter: 2013Q2

REPORT INFORMATION
  Report Type: Spontaneous
  Country: GR (occurrence: GR)
  Receive Date: 20120606
  Receipt Date: 20130506
  Transmission Date: 20140414
  Serious: Yes (Death, Life-Threatening, Other)
  Sender: FDA-Public Use
  Company Number: GR-UCBSA-058465

PATIENT
  Age: 70 Year
  Sex: Male

DRUGS (10)
  1. PIRACETAM [Suspect]
  2. ROTIGOTINE [Concomitant]
     Route: 062
  3. PRAMIPEXOL [Concomitant]
  4. AMANTADINE [Concomitant]
  5. QUETIAPINE [Concomitant]
  6. LEVODOPA [Concomitant]
  7. CARBIDOPA [Concomitant]
  8. PIPERACILLIN [Concomitant]
  9. TAZOBACTAM [Concomitant]
  10. HEPARIN XMB [Concomitant]

REACTIONS (8)
  - Death [Fatal]
  - Neuroleptic malignant syndrome [Unknown]
  - Hyperkinesia [Unknown]
  - Clonic convulsion [Unknown]
  - Muscle rigidity [Unknown]
  - Sinus tachycardia [Unknown]
  - Delirium [Unknown]
  - Pyrexia [Unknown]
